FAERS Safety Report 7980360-5 (Version None)
Quarter: 2011Q4

REPORT INFORMATION
  Report Type: 
  Country: None (occurrence: None)
  Receive Date: 20111214
  Receipt Date: 20111207
  Transmission Date: 20120403
  Serious: Yes (Other)
  Sender: FDA-Public Use
  Company Number: DE-JNJFOC-20111203958

PATIENT
  Sex: Male
  Weight: 81 kg

DRUGS (4)
  1. CANDESARTAN CILEXETIL [Concomitant]
  2. ASPIRIN [Concomitant]
  3. XARELTO [Suspect]
     Indication: KNEE ARTHROPLASTY
     Route: 065
     Dates: start: 20111124, end: 20111130
  4. BISOPROLOL FUMARATE [Concomitant]

REACTIONS (1)
  - DEEP VEIN THROMBOSIS [None]
